FAERS Safety Report 4530337-7 (Version None)
Quarter: 2004Q4

REPORT INFORMATION
  Report Type: 
  Country: None (occurrence: None)
  Receive Date: 20041215
  Receipt Date: 20041202
  Transmission Date: 20050328
  Serious: Yes (Hospitalization, Other)
  Sender: FDA-Public Use
  Company Number: 2004088104

PATIENT
  Age: 39 Year
  Sex: Female

DRUGS (6)
  1. ZYRTEC [Suspect]
     Indication: PRURITUS
     Dosage: 10 MG (1D), ORAL
     Route: 048
     Dates: start: 20040727, end: 20040809
  2. NIZATIDINE [Suspect]
     Indication: URTICARIA CHRONIC
     Dosage: 300 MG (1D), ORAL
     Route: 048
     Dates: start: 20040810, end: 20040827
  3. FEXOFENADINE HCL [Concomitant]
  4. OLOPATDINE (OLOPATADINE) [Concomitant]
  5. OXATOMIDE [Concomitant]
  6. FLEROXACIN (FLEROXACIN) [Concomitant]

REACTIONS (13)
  - ALANINE AMINOTRANSFERASE INCREASED [None]
  - ASPARTATE AMINOTRANSFERASE INCREASED [None]
  - ASTHENIA [None]
  - BLOOD ALKALINE PHOSPHATASE INCREASED [None]
  - BLOOD BILIRUBIN INCREASED [None]
  - BLOOD LACTATE DEHYDROGENASE INCREASED [None]
  - CYSTITIS [None]
  - DECREASED APPETITE [None]
  - LIVER DISORDER [None]
  - LYMPHOCYTE STIMULATION TEST POSITIVE [None]
  - PYREXIA [None]
  - URTICARIA [None]
  - VOMITING [None]
